FAERS Safety Report 18944540 (Version 1)
Quarter: 2021Q1

REPORT INFORMATION
  Report Type: Spontaneous
  Country: US (occurrence: US)
  Receive Date: 20210226
  Receipt Date: 20210226
  Transmission Date: 20210420
  Serious: Yes (Death, Other)
  Sender: FDA-Public Use
  Company Number: None

PATIENT

DRUGS (1)
  1. CINACALCET HCL 30MG TABLETS [Suspect]
     Active Substance: CINACALCET HYDROCHLORIDE

REACTIONS (1)
  - Death [None]
